FAERS Safety Report 13754607 (Version 1)
Quarter: 2017Q3

REPORT INFORMATION
  Report Type: Spontaneous
  Country: US (occurrence: US)
  Receive Date: 20170714
  Receipt Date: 20170714
  Transmission Date: 20171127
  Serious: No
  Sender: FDA-Public Use
  Company Number: US-SUN PHARMACEUTICAL INDUSTRIES LTD-2016US-123134

PATIENT
  Age: 57 Year
  Sex: Female

DRUGS (1)
  1. HALOG [Suspect]
     Active Substance: HALCINONIDE
     Indication: PSORIASIS
     Dosage: UNK UNK, BID
     Route: 065
     Dates: end: 20160822

REACTIONS (1)
  - Pruritus [Unknown]

NARRATIVE: CASE EVENT DATE: 20160822
